FAERS Safety Report 9140695 (Version 2)
Quarter: 2013Q1

REPORT INFORMATION
  Report Type: Spontaneous
  Country: CN (occurrence: CN)
  Receive Date: 20130305
  Receipt Date: 20130314
  Transmission Date: 20140127
  Serious: Yes (Life-Threatening)
  Sender: FDA-Public Use
  Company Number: CN-GLAXOSMITHKLINE-B0872248A

PATIENT
  Sex: Female

DRUGS (2)
  1. ZINACEF [Suspect]
     Indication: PROCEDURAL SITE REACTION
     Route: 042
  2. ANAESTHETICS [Concomitant]
     Route: 065

REACTIONS (2)
  - Shock [Recovered/Resolved]
  - Coma [Recovered/Resolved]
